FAERS Safety Report 9267290 (Version 1)
Quarter: 2013Q2

REPORT INFORMATION
  Report Type: Spontaneous
  Country: VE (occurrence: VE)
  Receive Date: 20130502
  Receipt Date: 20130502
  Transmission Date: 20140414
  Serious: Yes (Death, Hospitalization, Other)
  Sender: FDA-Public Use
  Company Number: VE-ABBOTT-13P-178-1083506-00

PATIENT
  Age: 10 Day
  Sex: Female

DRUGS (1)
  1. SURVANTA INTRATRACHEAL [Suspect]
     Indication: PREMATURE BABY
     Dosage: ENDOTRACHEAL, 200 MG / 8 ML, RECEIVED 87 MG
     Dates: start: 20130426, end: 20130426

REACTIONS (1)
  - Cardio-respiratory arrest [Fatal]
